FAERS Safety Report 9428217 (Version 1)
Quarter: 2013Q3

REPORT INFORMATION
  Report Type: Spontaneous
  Country: DE (occurrence: DE)
  Receive Date: 20130730
  Receipt Date: 20130730
  Transmission Date: 20140515
  Serious: Yes (Other)
  Sender: FDA-Public Use
  Company Number: DE-CELGENEUS-062-21660-13072785

PATIENT
  Age: 43 Year
  Sex: Female
  Weight: 47 kg

DRUGS (2)
  1. ABRAXANE [Suspect]
     Indication: CERVIX CARCINOMA
     Dosage: 15X125
     Route: 041
     Dates: start: 20130325, end: 20130610
  2. ABRAXANE [Suspect]
     Indication: PALLIATIVE CARE

REACTIONS (1)
  - Pigmentation disorder [Not Recovered/Not Resolved]
